APPROVED DRUG PRODUCT: IBUPROFEN
Active Ingredient: IBUPROFEN
Strength: 200MG
Dosage Form/Route: TABLET;ORAL
Application: A071664 | Product #001
Applicant: PUREPAC PHARMACEUTICAL CO
Approved: Feb 3, 1987 | RLD: No | RS: No | Type: DISCN